FAERS Safety Report 8965419 (Version 1)
Quarter: 2012Q4

REPORT INFORMATION
  Report Type: 
  Country: US (occurrence: US)
  Receive Date: 20121214
  Receipt Date: 20121214
  Transmission Date: 20130627
  Serious: Yes (Other)
  Sender: FDA-Public Use
  Company Number: US-PFIZER INC-2012311617

PATIENT
  Sex: Male

DRUGS (2)
  1. XANAX [Suspect]
     Dosage: UNK
  2. VYVANSE [Suspect]
     Dosage: UNK

REACTIONS (2)
  - Somnambulism [Unknown]
  - Sexual abuse [Unknown]
